FAERS Safety Report 20023710 (Version 1)
Quarter: 2021Q4

REPORT INFORMATION
  Report Type: Spontaneous
  Country: FR (occurrence: FR)
  Receive Date: 20211102
  Receipt Date: 20211102
  Transmission Date: 20220303
  Serious: Yes (Hospitalization, Other)
  Sender: FDA-Public Use
  Company Number: None

PATIENT
  Age: 38 Year
  Sex: Male
  Weight: 68 kg

DRUGS (9)
  1. ZOLPIDEM TARTRATE [Suspect]
     Active Substance: ZOLPIDEM TARTRATE
     Indication: Suicide attempt
     Dosage: 140 MG
     Route: 048
     Dates: start: 20180126, end: 20180126
  2. TRIMEPRAZINE [Suspect]
     Active Substance: TRIMEPRAZINE
     Indication: Suicide attempt
     Dosage: 120 ML
     Route: 048
     Dates: start: 20180126, end: 20180126
  3. NITRAZEPAM [Suspect]
     Active Substance: NITRAZEPAM
     Indication: Suicidal ideation
     Dosage: 300 MG
     Route: 048
     Dates: start: 20180126, end: 20180126
  4. CLOTIAZEPAM [Suspect]
     Active Substance: CLOTIAZEPAM
     Indication: Suicide attempt
     Dosage: 450 MG
     Route: 048
     Dates: start: 20180126, end: 20180126
  5. VALIUM [Concomitant]
     Active Substance: DIAZEPAM
     Dosage: 1 DF
     Route: 048
  6. VALIUM [Concomitant]
     Active Substance: DIAZEPAM
     Dosage: 3 DF
     Route: 048
  7. MIRTAZAPINE [Concomitant]
     Active Substance: MIRTAZAPINE
     Dosage: 1 DF
     Route: 048
  8. EFFEXOR [Concomitant]
     Active Substance: VENLAFAXINE HYDROCHLORIDE
     Dosage: 3 DF
     Route: 048
  9. TRUVADA [Concomitant]
     Active Substance: EMTRICITABINE\TENOFOVIR DISOPROXIL FUMARATE
     Dosage: 1 DF
     Route: 048

REACTIONS (3)
  - Hypotension [Recovered/Resolved]
  - Coma [Recovered/Resolved]
  - Intentional overdose [Unknown]
